FAERS Safety Report 4745447-9 (Version None)
Quarter: 2005Q3

REPORT INFORMATION
  Report Type: 
  Country: None (occurrence: None)
  Receive Date: 20050812
  Receipt Date: 20050801
  Transmission Date: 20060218
  Serious: Yes (Other)
  Sender: FDA-Public Use
  Company Number: 216586

PATIENT
  Sex: 0

DRUGS (1)
  1. RAPTIVA [Suspect]
     Dates: start: 20050101

REACTIONS (4)
  - APPENDICITIS PERFORATED [None]
  - ARTHRITIS [None]
  - EAR INFECTION [None]
  - JOINT SWELLING [None]
